FAERS Safety Report 24876897 (Version 2)
Quarter: 2025Q1

REPORT INFORMATION
  Report Type: Report from Study
  Country: CA (occurrence: CA)
  Receive Date: 20250123
  Receipt Date: 20250131
  Transmission Date: 20250409
  Serious: Yes (Other)
  Sender: TAKEDA
  Company Number: CA-TAKEDA-2025TUS007069

PATIENT
  Sex: Female

DRUGS (21)
  1. VEDOLIZUMAB [Suspect]
     Active Substance: VEDOLIZUMAB
     Indication: Crohn^s disease
  2. IMURAN [Concomitant]
     Active Substance: AZATHIOPRINE
     Dosage: 200 MILLIGRAM, QD
     Dates: start: 2014
  3. NADOLOL [Concomitant]
     Active Substance: NADOLOL
  4. ASPIRIN [Concomitant]
     Active Substance: ASPIRIN
  5. ESTROGENS [Concomitant]
     Active Substance: ESTROGENS
  6. PANTOPRAZOLE [Concomitant]
     Active Substance: PANTOPRAZOLE
  7. FLUVOXAMINE [Concomitant]
     Active Substance: FLUVOXAMINE
  8. LIPITOR [Concomitant]
     Active Substance: ATORVASTATIN CALCIUM
  9. GLICLAZIDE [Concomitant]
     Active Substance: GLICLAZIDE
  10. RAMIPRIL [Concomitant]
     Active Substance: RAMIPRIL
  11. AMLODIPINE [Concomitant]
     Active Substance: AMLODIPINE BESYLATE
  12. JANUMET [Concomitant]
     Active Substance: METFORMIN HYDROCHLORIDE\SITAGLIPTIN PHOSPHATE
  13. ZOPICLONE [Concomitant]
     Active Substance: ZOPICLONE
  14. INVOKANA [Concomitant]
     Active Substance: CANAGLIFLOZIN
  15. OZEMPIC [Concomitant]
     Active Substance: SEMAGLUTIDE
  16. ALENDRONATE [Concomitant]
     Active Substance: ALENDRONATE SODIUM
  17. TYLENOL WITH CODEINE [Concomitant]
     Active Substance: ACETAMINOPHEN\CODEINE PHOSPHATE
  18. PIOGLITAZONE [Concomitant]
     Active Substance: PIOGLITAZONE
  19. BASAGLAR [Concomitant]
     Active Substance: INSULIN GLARGINE
  20. VITAMIN D [Concomitant]
     Active Substance: VITAMIN D NOS
  21. CALCIUM [Concomitant]
     Active Substance: CALCIUM

REACTIONS (1)
  - Cataract [Not Recovered/Not Resolved]
